FAERS Safety Report 21224111 (Version 1)
Quarter: 2022Q3

REPORT INFORMATION
  Report Type: Spontaneous
  Country: GR (occurrence: GR)
  Receive Date: 20220817
  Receipt Date: 20220817
  Transmission Date: 20221027
  Serious: Yes (Hospitalization)
  Sender: FDA-Public Use
  Company Number: GR-ROCHE-2002336

PATIENT
  Age: 80 Year
  Sex: Female
  Weight: 70 kg

DRUGS (4)
  1. TRASTUZUMAB [Suspect]
     Active Substance: TRASTUZUMAB
     Dosage: 600 MG, CYCLIC (SUBCUTANEOUS TRASTUZUMAB INJECTION 600 MG ONCE EVERY 3 WEEKS; MOST RECENT DOSE PRIOR
     Route: 058
     Dates: start: 20160920
  2. CAPECITABINE [Suspect]
     Active Substance: CAPECITABINE
     Indication: Breast cancer metastatic
     Dosage: 100 MG, CYCLIC (100 MG ONCE EVERY 2 WEEKS; MOST RECENT DOSE PRIOR TO AE 20/MAR/2017)
     Route: 048
     Dates: start: 20160920
  3. MESTINON [Concomitant]
     Active Substance: PYRIDOSTIGMINE BROMIDE
     Dates: start: 20160715
  4. LEVOTHYROXINE [Concomitant]
     Active Substance: LEVOTHYROXINE

REACTIONS (4)
  - Atrial fibrillation [Unknown]
  - Pneumothorax [Unknown]
  - Aspiration [Unknown]
  - Gastric perforation [Recovered/Resolved]

NARRATIVE: CASE EVENT DATE: 20170331
